FAERS Safety Report 4388779-9 (Version None)
Quarter: 2004Q3

REPORT INFORMATION
  Report Type: 
  Country: None (occurrence: None)
  Receive Date: 20040701
  Receipt Date: 20040623
  Transmission Date: 20050211
  Serious: Yes (Hospitalization)
  Sender: FDA-Public Use
  Company Number: JP-MERCK-0406USA02453

PATIENT
  Age: 31 Year
  Sex: Female

DRUGS (4)
  1. EXCELASE [Concomitant]
     Route: 048
     Dates: start: 20040603, end: 20040609
  2. DIPYRIDAMOLE [Concomitant]
     Route: 048
     Dates: start: 20040602, end: 20040604
  3. PEPCID [Suspect]
     Route: 048
     Dates: start: 20040604, end: 20040609
  4. HIBON [Concomitant]
     Route: 048
     Dates: start: 20040603, end: 20040609

REACTIONS (1)
  - HEPATITIS [None]
